FAERS Safety Report 20233090 (Version 1)
Quarter: 2021Q4

REPORT INFORMATION
  Report Type: Report from Study
  Country: BR (occurrence: BR)
  Receive Date: 20211227
  Receipt Date: 20211227
  Transmission Date: 20220303
  Serious: Yes (Other)
  Sender: FDA-Public Use
  Company Number: BR-JNJFOC-20211248706

PATIENT
  Age: 79 Year
  Sex: Male
  Weight: 74 kg

DRUGS (1)
  1. REMICADE [Suspect]
     Active Substance: INFLIXIMAB
     Indication: Rheumatoid arthritis
     Route: 042

REACTIONS (3)
  - Pneumonia [Unknown]
  - COVID-19 [Unknown]
  - Blood pressure fluctuation [Unknown]
